FAERS Safety Report 5847951-9 (Version None)
Quarter: 2008Q3

REPORT INFORMATION
  Report Type: 
  Country: None (occurrence: None)
  Receive Date: 20080818
  Receipt Date: 20080806
  Transmission Date: 20090109
  Serious: No
  Sender: FDA-Public Use
  Company Number: US-BAYER-200825683NA

PATIENT
  Age: 28 Year
  Sex: Female
  Weight: 115 kg

DRUGS (1)
  1. MIRENA [Suspect]
     Indication: CONTRACEPTION
     Route: 015
     Dates: start: 20070101, end: 20080501

REACTIONS (1)
  - PREGNANCY WITH CONTRACEPTIVE DEVICE [None]
